FAERS Safety Report 4690012-5 (Version None)
Quarter: 2005Q2

REPORT INFORMATION
  Report Type: 
  Country: None (occurrence: None)
  Receive Date: 20050513
  Receipt Date: 20041223
  Transmission Date: 20051028
  Serious: Yes (Other)
  Sender: FDA-Public Use
  Company Number: 2004-123762-NL

PATIENT
  Age: 64 Year
  Sex: Female
  Weight: 79.5 kg

DRUGS (16)
  1. ZEMURON [Suspect]
     Indication: INTUBATION
     Dosage: 50 MG INTRAVENOUS (NOS)
     Route: 042
     Dates: start: 20041207, end: 20041207
  2. ZEMURON [Suspect]
     Indication: MUSCLE RELAXANT THERAPY
     Dosage: 50 MG INTRAVENOUS (NOS)
     Route: 042
     Dates: start: 20041207, end: 20041207
  3. ZEMURON [Suspect]
     Indication: INTUBATION
     Dosage: 10 MG INTRAVENOUS (NOS)
     Route: 042
     Dates: start: 20041207, end: 20041207
  4. ZEMURON [Suspect]
     Indication: MUSCLE RELAXANT THERAPY
     Dosage: 10 MG INTRAVENOUS (NOS)
     Route: 042
     Dates: start: 20041207, end: 20041207
  5. NEOSTIGMINE [Concomitant]
  6. ROBINUL [Concomitant]
  7. DIPRIVAN [Concomitant]
  8. LIDOCAINE [Concomitant]
  9. VERSED [Concomitant]
  10. MORPHINE SULFATE [Concomitant]
  11. EPHEDRINE SUL CAP [Concomitant]
  12. ANZEMET [Concomitant]
  13. CEFOTAN [Concomitant]
  14. SEVOFLURANE [Concomitant]
  15. ALLOPURINOL [Concomitant]
  16. SYNTHROID [Concomitant]

REACTIONS (1)
  - NEUROMUSCULAR BLOCK PROLONGED [None]
